FAERS Safety Report 5752034-2 (Version None)
Quarter: 2008Q2

REPORT INFORMATION
  Report Type: 
  Country: None (occurrence: None)
  Receive Date: 20080527
  Receipt Date: 20080514
  Transmission Date: 20081010
  Serious: Yes (Hospitalization)
  Sender: FDA-Public Use
  Company Number: 2008BI012318

PATIENT
  Age: 53 Year
  Sex: Female
  Weight: 52.1637 kg

DRUGS (1)
  1. TYSABRI [Suspect]
     Indication: MULTIPLE SCLEROSIS
     Dosage: 300 MG;QM;IV
     Route: 042
     Dates: start: 20080128

REACTIONS (6)
  - DECUBITUS ULCER [None]
  - HERPES ZOSTER [None]
  - INFECTED SKIN ULCER [None]
  - INFECTION [None]
  - RASH [None]
  - STOMACH DISCOMFORT [None]
